FAERS Safety Report 7573063-2 (Version None)
Quarter: 2011Q2

REPORT INFORMATION
  Report Type: 
  Country: None (occurrence: None)
  Receive Date: 20110627
  Receipt Date: 20110621
  Transmission Date: 20111010
  Serious: Yes (Hospitalization, Other)
  Sender: FDA-Public Use
  Company Number: US-AMGEN-USASP2011030846

PATIENT
  Age: 90 Year
  Sex: Female
  Weight: 90.249 kg

DRUGS (13)
  1. LIPITOR [Concomitant]
  2. DETROL LA [Concomitant]
  3. ATIVAN [Concomitant]
  4. JANUVIA [Concomitant]
  5. ATENOLOL [Concomitant]
  6. FLUOXETINE HCL [Concomitant]
  7. RITUXIMAB [Concomitant]
  8. VICODIN [Concomitant]
  9. HYZAAR [Concomitant]
  10. LABETALOL HCL [Concomitant]
  11. CATAPRES                           /00171101/ [Concomitant]
  12. DIOVAN [Concomitant]
  13. NPLATE [Suspect]
     Indication: IDIOPATHIC THROMBOCYTOPENIC PURPURA
     Dosage: 120 A?G, UNK
     Dates: start: 20090219

REACTIONS (19)
  - THROMBOCYTOPENIA [None]
  - DIASTOLIC DYSFUNCTION [None]
  - HAEMORRHOIDS [None]
  - FALL [None]
  - TRICUSPID VALVE INCOMPETENCE [None]
  - ATRIOVENTRICULAR BLOCK SECOND DEGREE [None]
  - PULMONARY EMBOLISM [None]
  - CARDIAC MURMUR [None]
  - HYPOXIA [None]
  - CONFUSIONAL STATE [None]
  - GASTROINTESTINAL HAEMORRHAGE [None]
  - PNEUMONIA [None]
  - INFARCTION [None]
  - DIVERTICULUM [None]
  - BRADYCARDIA [None]
  - PULMONARY HYPERTENSION [None]
  - ANAEMIA [None]
  - RESPIRATORY FAILURE [None]
  - CARDIAC FAILURE CONGESTIVE [None]
